FAERS Safety Report 5417094-7 (Version None)
Quarter: 2007Q3

REPORT INFORMATION
  Report Type: 
  Country: None (occurrence: None)
  Receive Date: 20070718
  Receipt Date: 20060828
  Transmission Date: 20080115
  Serious: Yes (Hospitalization, Other)
  Sender: FDA-Public Use
  Company Number: 2005130923

PATIENT
  Age: 48 Year
  Sex: Male
  Weight: 95.2554 kg

DRUGS (2)
  1. CELEBREX [Suspect]
     Indication: ARTHRITIS
     Dosage: 400 MG (200 MG, TWICE DAILY; AS NECESSARY), ORAL
     Route: 048
     Dates: start: 20000101, end: 20040722
  2. CELEBREX [Suspect]
     Indication: PAIN
     Dosage: 400 MG (200 MG, TWICE DAILY; AS NECESSARY), ORAL
     Route: 048
     Dates: start: 20000101, end: 20040722

REACTIONS (1)
  - MYOCARDIAL INFARCTION [None]
